FAERS Safety Report 10189057 (Version 1)
Quarter: 2014Q2

REPORT INFORMATION
  Report Type: Spontaneous
  Country: JP (occurrence: JP)
  Receive Date: 20140522
  Receipt Date: 20140522
  Transmission Date: 20141212
  Serious: Yes (Other)
  Sender: FDA-Public Use
  Company Number: JP-SA-2014SA063747

PATIENT
  Sex: 0

DRUGS (2)
  1. PLAVIX [Suspect]
     Indication: CEREBRAL INFARCTION
     Route: 048
  2. BAYASPIRIN [Concomitant]
     Indication: CEREBRAL INFARCTION
     Route: 048

REACTIONS (1)
  - Cerebral infarction [Unknown]
